FAERS Safety Report 4610859-0 (Version None)
Quarter: 2005Q1

REPORT INFORMATION
  Report Type: 
  Country: None (occurrence: None)
  Receive Date: 20050317
  Receipt Date: 20050307
  Transmission Date: 20050727
  Serious: Yes (Death)
  Sender: FDA-Public Use
  Company Number: US-JNJFOC-20050302180

PATIENT

DRUGS (1)
  1. REOPRO [Suspect]
     Route: 042

REACTIONS (1)
  - CEREBRAL HAEMORRHAGE [None]
